FAERS Safety Report 4414759-0 (Version None)
Quarter: 2004Q3

REPORT INFORMATION
  Report Type: 
  Country: None (occurrence: None)
  Receive Date: 20040804
  Receipt Date: 20030825
  Transmission Date: 20050211
  Serious: No
  Sender: FDA-Public Use
  Company Number: US-BRISTOL-MYERS SQUIBB COMPANY-12365052

PATIENT
  Age: 69 Year
  Sex: Female
  Weight: 77 kg

DRUGS (10)
  1. GLUCOVANCE [Suspect]
     Indication: DIABETES MELLITUS
     Route: 048
     Dates: start: 20030817
  2. DIOVAN [Concomitant]
  3. LASIX [Concomitant]
  4. ASPIRIN [Concomitant]
  5. ATENOLOL [Concomitant]
  6. ZYPREXA [Concomitant]
  7. ISOSORBIDE [Concomitant]
  8. MULTIVITAMIN [Concomitant]
  9. CENTRUM [Concomitant]
  10. PREVACID [Concomitant]

REACTIONS (3)
  - ASTHENIA [None]
  - DIZZINESS [None]
  - TREMOR [None]
